FAERS Safety Report 6840079-0 (Version None)
Quarter: 2010Q3

REPORT INFORMATION
  Report Type: 
  Country: None (occurrence: None)
  Receive Date: 20100714
  Receipt Date: 20100707
  Transmission Date: 20110219
  Serious: Yes (Other)
  Sender: FDA-Public Use
  Company Number: FR-B.I. PHARMACEUTICALS,INC./RIDGEFIELD-2010-BP-07420YA

PATIENT
  Sex: Male
  Weight: 65 kg

DRUGS (5)
  1. TAMSULOSIN HCL [Suspect]
     Indication: BENIGN PROSTATIC HYPERPLASIA
     Route: 048
     Dates: start: 20100525, end: 20100616
  2. TAMSULOSIN HCL [Suspect]
     Indication: URINARY TRACT DISORDER
  3. SOLIFENACIN [Suspect]
     Indication: BENIGN PROSTATIC HYPERPLASIA
     Route: 048
     Dates: start: 20100525, end: 20100616
  4. SOLIFENACIN [Suspect]
     Indication: URINARY TRACT DISORDER
  5. DIPROSONE [Concomitant]
     Indication: PSORIASIS
     Dates: start: 20050101

REACTIONS (4)
  - CATARACT [None]
  - CONSTIPATION [None]
  - DRY MOUTH [None]
  - DYSPEPSIA [None]
